FAERS Safety Report 11048562 (Version 4)
Quarter: 2015Q2

REPORT INFORMATION
  Report Type: Spontaneous
  Country: NL (occurrence: NL)
  Receive Date: 20150420
  Receipt Date: 20150505
  Transmission Date: 20150821
  Serious: Yes (Life-Threatening)
  Sender: FDA-Public Use
  Company Number: PHHY2015NL044674

PATIENT
  Age: 60 Year
  Sex: Female

DRUGS (5)
  1. VALDOXAN [Interacting]
     Active Substance: AGOMELATINE
     Indication: DEPRESSION
     Dosage: 25 MG, QD
     Route: 065
     Dates: start: 20141022
  2. VALDOXAN [Interacting]
     Active Substance: AGOMELATINE
     Dosage: INCREASING THE DOSE
     Route: 065
  3. DICLOFENAC [Suspect]
     Active Substance: DICLOFENAC
     Indication: BURSITIS
     Dosage: 1 DF, QD
     Route: 065
     Dates: start: 201408
  4. ARCOXIA [Interacting]
     Active Substance: ETORICOXIB
     Dosage: UNK
     Route: 065
     Dates: start: 201410
  5. ARCOXIA [Interacting]
     Active Substance: ETORICOXIB
     Indication: BURSITIS
     Dosage: 30 MG, QD
     Route: 065
     Dates: start: 201408

REACTIONS (10)
  - Anxiety [Recovered/Resolved]
  - Suicidal ideation [Recovered/Resolved]
  - Constipation [Recovered/Resolved]
  - Emotional disorder [Recovered/Resolved]
  - Fatigue [Recovered/Resolved]
  - Rash [Recovered/Resolved]
  - Nausea [Recovered/Resolved]
  - Dry mouth [Not Recovered/Not Resolved]
  - Crying [Recovered/Resolved]
  - Influenza like illness [Recovered/Resolved]

NARRATIVE: CASE EVENT DATE: 201410
